FAERS Safety Report 8373727-7 (Version None)
Quarter: 2012Q2

REPORT INFORMATION
  Report Type: 
  Country: None (occurrence: None)
  Receive Date: 20120517
  Receipt Date: 20120504
  Transmission Date: 20120825
  Serious: Yes (Life-Threatening)
  Sender: FDA-Public Use
  Company Number: FK201201230

PATIENT
  Age: 36 Year
  Sex: Female

DRUGS (1)
  1. CEFTRIAXON [Suspect]
     Indication: UPPER RESPIRATORY TRACT INFECTION
     Dosage: INTRAVENOUS (NOT OTHERWISE SPECIFIED)
     Route: 042

REACTIONS (7)
  - STRESS CARDIOMYOPATHY [None]
  - PNEUMONIA [None]
  - HAEMODYNAMIC INSTABILITY [None]
  - ANAPHYLACTIC REACTION [None]
  - MULTI-ORGAN FAILURE [None]
  - HAEMODIALYSIS [None]
  - ACUTE RESPIRATORY FAILURE [None]
